FAERS Safety Report 15306240 (Version 3)
Quarter: 2018Q4

REPORT INFORMATION
  Report Type: Spontaneous
  Country: US (occurrence: US)
  Receive Date: 20180822
  Receipt Date: 20181112
  Transmission Date: 20190204
  Serious: No
  Sender: FDA-Public Use
  Company Number: US-PFIZER INC-2018337766

PATIENT
  Sex: Female

DRUGS (1)
  1. LYRICA [Suspect]
     Active Substance: PREGABALIN
     Indication: MASS
     Dosage: 200 MG, UNK

REACTIONS (8)
  - Drug ineffective for unapproved indication [Unknown]
  - Pain [Unknown]
  - Abdominal discomfort [Unknown]
  - Gait disturbance [Unknown]
  - Withdrawal syndrome [Not Recovered/Not Resolved]
  - Dissociation [Unknown]
  - Head discomfort [Unknown]
  - Intentional product use issue [Unknown]
